FAERS Safety Report 16853554 (Version 1)
Quarter: 2019Q3

REPORT INFORMATION
  Report Type: Spontaneous
  Country: ES (occurrence: ES)
  Receive Date: 20190926
  Receipt Date: 20190926
  Transmission Date: 20191005
  Serious: Yes (Hospitalization)
  Sender: FDA-Public Use
  Company Number: ES-ACCORD-155760

PATIENT
  Age: 76 Year
  Sex: Male

DRUGS (4)
  1. BROMAZEPAM STADA [Concomitant]
     Dosage: STRENGTH 1.5 MG, 30 CAPSULES
     Route: 048
     Dates: start: 20150317
  2. CAPECITABINE KERN PHARMA [Interacting]
     Active Substance: CAPECITABINE
     Indication: RECTAL ADENOCARCINOMA
     Dosage: STRENGTH 300 MG,60 TABLETS (PVC /?PVDC BLISTER ALUMINUM)
     Route: 048
     Dates: start: 20190708, end: 20190717
  3. CAPECITABINE ACCORD [Suspect]
     Active Substance: CAPECITABINE
     Indication: RECTAL ADENOCARCINOMA
     Dosage: STRENGTH 500 MG, 120 TABLETS,1000 MG / 12H OF L TO V
     Route: 048
     Dates: start: 20190708, end: 20190717
  4. METAMIZOL STADA [Concomitant]
     Active Substance: METAMIZOLE SODIUM
     Dosage: 575 MG HARD CAPSULES EFG, 20 CAPSULES
     Route: 048
     Dates: start: 20190424

REACTIONS (2)
  - Drug interaction [Unknown]
  - Angina pectoris [Recovered/Resolved]

NARRATIVE: CASE EVENT DATE: 20190717
